FAERS Safety Report 8771254 (Version 1)
Quarter: 2012Q4

REPORT INFORMATION
  Report Type: 
  Country: BR (occurrence: BR)
  Receive Date: 20120906
  Receipt Date: 20120906
  Transmission Date: 20130627
  Serious: Yes (Other)
  Sender: FDA-Public Use
  Company Number: PHHY2012BR076170

PATIENT
  Age: 77 Year
  Sex: Male

DRUGS (9)
  1. BUDESONIDE, FORMOTEROL FUMARATE [Suspect]
     Dosage: 400 mg, BID
  2. OXYGEN [Concomitant]
     Dosage: 2 L/min continuous use
     Route: 045
  3. BAMIFYLLINE [Concomitant]
     Dosage: 1200 mg, per day
  4. PREDNISONE [Concomitant]
     Dosage: 10 mg, per day
  5. TIOTROPIUM BROMIDE [Concomitant]
     Dosage: 5 g, per day
  6. CLOPIDOGREL [Concomitant]
     Dosage: 75 UKN, UNK
  7. ASS [Concomitant]
  8. DIGOXIN [Concomitant]
  9. FUROSEMIDE [Concomitant]

REACTIONS (11)
  - Cyanosis [Unknown]
  - Dyspnoea [Recovering/Resolving]
  - Lung hyperinflation [Unknown]
  - Emphysema [Unknown]
  - Pulmonary bulla [Unknown]
  - Breath sounds abnormal [Unknown]
  - Fatigue [Unknown]
  - Malaise [Unknown]
  - Stress [Unknown]
  - Anxiety [Unknown]
  - Depression [Unknown]
